FAERS Safety Report 10231289 (Version 2)
Quarter: 2014Q2

REPORT INFORMATION
  Report Type: Report from Study
  Country: US (occurrence: US)
  Receive Date: 20140611
  Receipt Date: 20140611
  Transmission Date: 20141212
  Serious: No
  Sender: FDA-Public Use
  Company Number: PHEH2012US023309

PATIENT
  Age: 65 Year
  Sex: Female
  Weight: 63.49 kg

DRUGS (5)
  1. TASIGNA [Suspect]
     Indication: LEUKAEMIA
     Dosage: 300 MG, BID (150 MG TWO CAPSULES TWICE A DAY)
     Route: 048
     Dates: start: 20121001
  2. TASIGNA [Suspect]
     Dosage: 300 MG, QD
     Route: 048
     Dates: start: 201210
  3. AMLODIPINE [Concomitant]
     Dosage: UNK UKN, UNK
  4. DIOVAN [Concomitant]
     Dosage: UNK UKN, UNK
  5. ABTEI MAGNESIUM [Concomitant]
     Dosage: UNK UKN, UNK

REACTIONS (9)
  - White blood cell count decreased [Unknown]
  - Blood potassium decreased [Unknown]
  - Rash [Unknown]
  - Headache [Unknown]
  - Nausea [Unknown]
  - Myalgia [Unknown]
  - Abdominal pain [Unknown]
  - Anaemia [Unknown]
  - Blood cholesterol increased [Unknown]
